FAERS Safety Report 13131131 (Version 1)
Quarter: 2017Q1

REPORT INFORMATION
  Report Type: Spontaneous
  Country: US (occurrence: US)
  Receive Date: 20170119
  Receipt Date: 20170119
  Transmission Date: 20170428
  Serious: Yes (Hospitalization)
  Sender: FDA-Public Use
  Company Number: US-AMGEN-USASP2017007658

PATIENT
  Age: 63 Year
  Sex: Female

DRUGS (3)
  1. VITAMIN D [Concomitant]
     Active Substance: CHOLECALCIFEROL
  2. PROLIA [Suspect]
     Active Substance: DENOSUMAB
     Indication: OSTEOPOROSIS POSTMENOPAUSAL
     Dosage: UNK
     Route: 065
     Dates: start: 2012
  3. CALCIUM [Concomitant]
     Active Substance: CALCIUM

REACTIONS (7)
  - Rash [Recovered/Resolved]
  - Limb injury [Unknown]
  - Bone density decreased [Not Recovered/Not Resolved]
  - Dizziness [Recovered/Resolved]
  - Goitre [Unknown]
  - Inner ear disorder [Unknown]
  - Animal bite [Unknown]

NARRATIVE: CASE EVENT DATE: 2012
